FAERS Safety Report 23040522 (Version 1)
Quarter: 2023Q4

REPORT INFORMATION
  Report Type: Other
  Country: US (occurrence: US)
  Receive Date: 20231006
  Receipt Date: 20231006
  Transmission Date: 20240110
  Serious: Yes (Other)
  Sender: FDA-Public Use
  Company Number: US-TRAVERE-2023TVT00518

PATIENT
  Age: 21 Year
  Sex: Male

DRUGS (2)
  1. CHOLBAM [Suspect]
     Active Substance: CHOLIC ACID
     Indication: Lipoprotein deficiency
     Route: 048
     Dates: start: 20150515
  2. CHOLBAM [Suspect]
     Active Substance: CHOLIC ACID
     Dosage: PATIENT IS TAKING CHOLBAM 250MG CAPSULES 2 DAILY ALONG WITH 3 CAPSULES OF CHOLBAM 50MG DAILY (TOTAL
     Route: 048
     Dates: start: 20150515

REACTIONS (1)
  - White matter lesion [Unknown]
